FAERS Safety Report 6763319-5 (Version None)
Quarter: 2010Q2

REPORT INFORMATION
  Report Type: 
  Country: None (occurrence: None)
  Receive Date: 20100608
  Receipt Date: 20100608
  Transmission Date: 20101027
  Serious: Yes (Hospitalization)
  Sender: FDA-Public Use
  Company Number: None

PATIENT
  Sex: Female
  Weight: 61.3 kg

DRUGS (1)
  1. ERBITUX [Suspect]
     Dosage: 408 MG
     Dates: end: 20100513

REACTIONS (5)
  - IMPAIRED DRIVING ABILITY [None]
  - IMPAIRED WORK ABILITY [None]
  - MALIGNANT NEOPLASM PROGRESSION [None]
  - ORBITAL OEDEMA [None]
  - VISUAL IMPAIRMENT [None]
